FAERS Safety Report 8043066-2 (Version None)
Quarter: 2012Q1

REPORT INFORMATION
  Report Type: 
  Country: None (occurrence: None)
  Receive Date: 20120112
  Receipt Date: 20120109
  Transmission Date: 20120608
  Serious: Yes (Hospitalization)
  Sender: FDA-Public Use
  Company Number: US-VERTEX PHARMACEUTICALS INC.-AE-2012-000618

PATIENT
  Sex: Female
  Weight: 92.162 kg

DRUGS (9)
  1. AMBIEN [Concomitant]
     Indication: INSOMNIA
  2. DILANTIN [Concomitant]
     Indication: CONVULSION
  3. INCIVEK [Suspect]
     Indication: HEPATITIS C
     Route: 048
     Dates: start: 20111123
  4. RIBAVIRIN [Concomitant]
     Indication: HEPATITIS C
     Route: 048
     Dates: start: 20111123
  5. XANAX [Concomitant]
     Indication: ANXIETY
  6. SYNTHROID [Concomitant]
     Indication: HYPOTHYROIDISM
  7. LOPRESSOR [Concomitant]
     Indication: HYPERTENSION
  8. LISINOPRIL [Concomitant]
     Indication: HYPERTENSION
  9. PEGASYS [Concomitant]
     Indication: HEPATITIS C
     Dates: start: 20111123

REACTIONS (3)
  - VOMITING [None]
  - PULMONARY EMBOLISM [None]
  - THROMBOSIS [None]
